FAERS Safety Report 14266093 (Version 1)
Quarter: 2017Q4

REPORT INFORMATION
  Report Type: Spontaneous
  Country: SN (occurrence: SN)
  Receive Date: 20171209
  Receipt Date: 20171209
  Transmission Date: 20180321
  Serious: Yes (Other)
  Sender: FDA-Public Use
  Company Number: SN-LUPIN PHARMACEUTICALS INC.-2017-06928

PATIENT
  Age: 47 Year
  Sex: Female

DRUGS (2)
  1. HYDROQUINONE. [Suspect]
     Active Substance: HYDROQUINONE
     Indication: SKIN DISCOLOURATION
     Dosage: UNK
     Route: 061
  2. CLOBETASOL PROPIONATE. [Suspect]
     Active Substance: CLOBETASOL PROPIONATE
     Indication: SKIN DISCOLOURATION
     Dosage: UNK
     Route: 061

REACTIONS (2)
  - Skin atrophy [Unknown]
  - Squamous cell carcinoma of skin [Recovering/Resolving]
